FAERS Safety Report 7102598-1 (Version None)
Quarter: 2010Q4

REPORT INFORMATION
  Report Type: 
  Country: None (occurrence: None)
  Receive Date: 20101115
  Receipt Date: 20101109
  Transmission Date: 20110411
  Serious: Yes (Other)
  Sender: FDA-Public Use
  Company Number: A0891483A

PATIENT
  Sex: Female

DRUGS (4)
  1. TYKERB [Suspect]
     Dosage: 1250MG PER DAY
     Route: 048
     Dates: start: 20100329
  2. CALCIUM [Concomitant]
     Route: 065
  3. METAMUCIL-2 [Concomitant]
     Route: 065
  4. ANTIHISTAMINE [Concomitant]
     Route: 065

REACTIONS (3)
  - CONSTIPATION [None]
  - DIARRHOEA [None]
  - VOCAL CORD PARALYSIS [None]
